FAERS Safety Report 20798691 (Version 21)
Quarter: 2022Q4

REPORT INFORMATION
  Report Type: Spontaneous
  Country: CA (occurrence: CA)
  Receive Date: 20220507
  Receipt Date: 20221215
  Transmission Date: 20230113
  Serious: Yes (Hospitalization, Other)
  Sender: FDA-Public Use
  Company Number: CA-CELLTRION INC.-2022CA005794

PATIENT

DRUGS (26)
  1. INFLECTRA [Suspect]
     Active Substance: INFLIXIMAB-DYYB
     Indication: Colitis ulcerative
     Dosage: 10 MG/KG, FREQUENCY UNKNOWN -HOSPITAL START (WEEK 0)
     Route: 042
     Dates: start: 20220411, end: 20220411
  2. INFLECTRA [Suspect]
     Active Substance: INFLIXIMAB-DYYB
     Indication: Crohn^s disease
     Dosage: 10 MG/KG (AT HOSPITAL) (WEEK2)
     Route: 042
     Dates: start: 20220419, end: 20220419
  3. INFLECTRA [Suspect]
     Active Substance: INFLIXIMAB-DYYB
     Dosage: 10 MG/KG (AT HOSPITAL) (WEEK 6)
     Route: 042
     Dates: start: 20220429, end: 20220429
  4. INFLECTRA [Suspect]
     Active Substance: INFLIXIMAB-DYYB
     Dosage: 10 MG/KG EVERY 4 WEEKS
     Route: 042
     Dates: start: 20220607
  5. INFLECTRA [Suspect]
     Active Substance: INFLIXIMAB-DYYB
     Dosage: 1100 MG, SUPPOSED TO RECEIVE 10 MG/KG EVERY 4 WEEKS
     Route: 042
     Dates: start: 20220706
  6. INFLECTRA [Suspect]
     Active Substance: INFLIXIMAB-DYYB
     Dosage: 1100 MG, SUPPOSED TO RECEIVE 10 MG/KG EVERY 4 WEEKS
     Route: 042
     Dates: start: 20220811
  7. INFLECTRA [Suspect]
     Active Substance: INFLIXIMAB-DYYB
     Dosage: 1100 MG, SUPPOSED TO RECEIVE 10 MG/KG EVERY 4 WEEKS
     Route: 042
     Dates: start: 20220811
  8. INFLECTRA [Suspect]
     Active Substance: INFLIXIMAB-DYYB
     Dosage: 10 MG/KG EVERY 4 WEEKS
     Route: 042
     Dates: start: 20220831
  9. INFLECTRA [Suspect]
     Active Substance: INFLIXIMAB-DYYB
     Dosage: 10 MG/KG EVERY 4 WEEKS
     Route: 042
     Dates: start: 20221004
  10. INFLECTRA [Suspect]
     Active Substance: INFLIXIMAB-DYYB
     Dosage: 10 MG/KG EVERY 4 WEEKS
     Route: 042
     Dates: start: 20221104, end: 20221104
  11. INFLECTRA [Suspect]
     Active Substance: INFLIXIMAB-DYYB
     Dosage: 10 MG/KG EVERY 4 WEEKS
     Route: 042
     Dates: start: 20221104
  12. INFLECTRA [Suspect]
     Active Substance: INFLIXIMAB-DYYB
     Dosage: 10 MG/KG EVERY 4 WEEKS
     Route: 042
     Dates: start: 20221202
  13. CALCIUM [Concomitant]
     Active Substance: CALCIUM
     Dosage: 1 DF
     Route: 048
     Dates: end: 202209
  14. CALCIUM [Concomitant]
     Active Substance: CALCIUM
     Dosage: 1 DF DOSAGE NOT AVAILABLE
     Route: 065
  15. CORTISONE [Concomitant]
     Active Substance: CORTISONE
     Dosage: UNK
  16. DILAUDID [Concomitant]
     Active Substance: HYDROMORPHONE HYDROCHLORIDE
     Dosage: 1 DF, DOSAGE UNKNOWN
     Route: 065
  17. IMODIUM [Concomitant]
     Active Substance: LOPERAMIDE HYDROCHLORIDE
     Dosage: 1 DF, DOSAGE UNKNOWN
     Route: 065
  18. PREDNISONE [Concomitant]
     Active Substance: PREDNISONE
     Dosage: UNK
     Route: 048
     Dates: start: 202204
  19. PREDNISONE [Concomitant]
     Active Substance: PREDNISONE
     Dosage: 1 DF
     Route: 048
     Dates: start: 202204
  20. PREDNISONE [Concomitant]
     Active Substance: PREDNISONE
     Dosage: 1 DF
     Route: 065
     Dates: start: 202204
  21. SOLU-MEDROL [Concomitant]
     Active Substance: METHYLPREDNISOLONE SODIUM SUCCINATE
     Dosage: UNK
  22. TRAMADOL [Concomitant]
     Active Substance: TRAMADOL
     Dosage: 1 DF DOSAGE NOT AVAILABLE
     Route: 065
  23. TYLENOL [Concomitant]
     Active Substance: ACETAMINOPHEN
     Dosage: 1 DF DOSAGE NOT AVAILABLE
     Route: 065
  24. CHOLECALCIFEROL [Concomitant]
     Active Substance: CHOLECALCIFEROL
     Dosage: 1 DF
     Route: 048
     Dates: end: 202209
  25. CHOLECALCIFEROL [Concomitant]
     Active Substance: CHOLECALCIFEROL
     Dosage: 1 DF DOSAGE NOT AVAILABLE
     Route: 065
  26. VITAMIN B12 [Concomitant]
     Active Substance: CYANOCOBALAMIN
     Dosage: 1 DF, DOSAGE UNKNOWN
     Route: 064

REACTIONS (17)
  - Pain [Unknown]
  - Crohn^s disease [Not Recovered/Not Resolved]
  - Intestinal obstruction [Unknown]
  - Colectomy [Unknown]
  - Colostomy [Unknown]
  - Hepatic enzyme increased [Unknown]
  - C-reactive protein increased [Recovering/Resolving]
  - Drug ineffective [Unknown]
  - Off label use [Unknown]
  - Off label use [Unknown]
  - Inappropriate schedule of product administration [Unknown]
  - Eating disorder [Unknown]
  - Malaise [Unknown]
  - Myalgia [Not Recovered/Not Resolved]
  - Arthralgia [Not Recovered/Not Resolved]
  - Heart rate decreased [Unknown]
  - Weight increased [Unknown]

NARRATIVE: CASE EVENT DATE: 20220101
